FAERS Safety Report 8359162-6 (Version None)
Quarter: 2012Q2

REPORT INFORMATION
  Report Type: 
  Country: None (occurrence: None)
  Receive Date: 20120511
  Receipt Date: 20120511
  Transmission Date: 20120825
  Serious: Yes (Other)
  Sender: FDA-Public Use
  Company Number: None

PATIENT
  Sex: Female

DRUGS (1)
  1. PINDOLOL [Suspect]
     Indication: BLOOD PRESSURE
     Dosage: 1/2 TAB ONE PER DAY PRESCRIPTION
     Dates: start: 20111001, end: 20120306

REACTIONS (2)
  - PALPITATIONS [None]
  - BLOOD PRESSURE INCREASED [None]
